FAERS Safety Report 9970229 (Version 1)
Quarter: 2014Q1

REPORT INFORMATION
  Report Type: Spontaneous
  Country: FR (occurrence: None)
  Receive Date: 20140304
  Receipt Date: 20140304
  Transmission Date: 20141002
  Serious: Yes (Other)
  Sender: FDA-Public Use
  Company Number: SYM-2014-17796

PATIENT
  Age: 66 Year
  Sex: Female

DRUGS (11)
  1. FLAGYL [Suspect]
     Indication: PRODUCT USED FOR UNKNOWN INDICATION
     Route: 048
     Dates: start: 20140109, end: 20140115
  2. RIFAMPICIN [Suspect]
     Indication: PRODUCT USED FOR UNKNOWN INDICATION
     Route: 048
     Dates: start: 20140109, end: 20140114
  3. TAVANIC [Suspect]
     Indication: PRODUCT USED FOR UNKNOWN INDICATION
     Route: 048
     Dates: start: 20140109, end: 20140115
  4. LASILIX (FUROSEMIDE) (FUROSEMIDE) [Suspect]
     Indication: PRODUCT USED FOR UNKNOWN INDICATION
  5. SERETIDE [Suspect]
     Indication: PRODUCT USED FOR UNKNOWN INDICATION
  6. KARDEGIC (ACETYLSALICYLATE LYSINE) [Concomitant]
  7. UMULINE (INSULIN HUMAN ZINC SUSPENSION) [Concomitant]
  8. CARDENSIEL (BISOPROLOL FUMARATE) [Concomitant]
  9. INEXIUM (ESOMEPRAZOLE MAGNESIUM) (ESOMEPRAZOLE MAGNESIUM) [Concomitant]
  10. TAHOR (ATORVASTATIN CALCIUM) [Concomitant]
  11. TAREG (VALSARTAN) [Concomitant]

REACTIONS (1)
  - Hepatitis [None]
